FAERS Safety Report 18372823 (Version 3)
Quarter: 2020Q4

REPORT INFORMATION
  Report Type: Spontaneous
  Country: US (occurrence: US)
  Receive Date: 20201012
  Receipt Date: 20201229
  Transmission Date: 20210114
  Serious: Yes (Other)
  Sender: FDA-Public Use
  Company Number: US-PFIZER INC-2020355995

PATIENT
  Age: 78 Year
  Sex: Male

DRUGS (2)
  1. BRAFTOVI [Suspect]
     Active Substance: ENCORAFENIB
     Indication: MALIGNANT MELANOMA
     Dosage: 450 MG
  2. MEKTOVI [Suspect]
     Active Substance: BINIMETINIB
     Indication: MALIGNANT MELANOMA
     Dosage: 45 MG

REACTIONS (8)
  - Hypotension [Unknown]
  - Chorioretinopathy [Unknown]
  - Vision blurred [Unknown]
  - Seizure [Unknown]
  - Insomnia [Unknown]
  - Memory impairment [Unknown]
  - Neoplasm progression [Unknown]
  - Product communication issue [Unknown]
